FAERS Safety Report 6411029-6 (Version None)
Quarter: 2009Q4

REPORT INFORMATION
  Report Type: 
  Country: None (occurrence: None)
  Receive Date: 20091020
  Receipt Date: 20091020
  Transmission Date: 20100525
  Serious: Yes (Hospitalization)
  Sender: FDA-Public Use
  Company Number: None

PATIENT
  Age: 39 Year
  Sex: Female
  Weight: 83 kg

DRUGS (3)
  1. DULOXETINE HYDROCHLORIDE [Suspect]
     Indication: DEPRESSION
     Dosage: 60MG TWICE DAILY PO
     Route: 048
     Dates: start: 20090408, end: 20091008
  2. CITALOPRAM HYDROBROMIDE [Concomitant]
  3. ZOLPIDEM [Concomitant]

REACTIONS (3)
  - HOSPITALISATION [None]
  - LIVER FUNCTION TEST ABNORMAL [None]
  - MENTAL STATUS CHANGES [None]
